FAERS Safety Report 7516413-5 (Version None)
Quarter: 2011Q2

REPORT INFORMATION
  Report Type: 
  Country: None (occurrence: None)
  Receive Date: 20110601
  Receipt Date: 20110121
  Transmission Date: 20111010
  Serious: Yes (Other)
  Sender: FDA-Public Use
  Company Number: US-BAYER-201035562NA

PATIENT
  Age: 25 Year
  Sex: Female
  Weight: 81.633 kg

DRUGS (20)
  1. YASMIN [Suspect]
     Indication: PROPHYLAXIS
  2. ATIVAN [Concomitant]
  3. LORAZEPAM [Concomitant]
     Indication: TACHYCARDIA
  4. REGLAN [Concomitant]
  5. NAPROXEN [Concomitant]
  6. HYDROXYZINE PAMOATE [Concomitant]
     Dosage: 50 MG, UNK
  7. PROPAFENONE HCL [Concomitant]
     Dosage: 300 MG, UNK
  8. MAXALT [Concomitant]
  9. VITAMIN D [Concomitant]
  10. HYDROCODONE [HYDROCODONE] [Concomitant]
  11. CYCLOBENZAPRINE [Concomitant]
     Dosage: 10 MG, UNK
  12. YAZ [Suspect]
     Indication: CONTRACEPTION
     Dosage: UNK
     Route: 048
     Dates: start: 20060101, end: 20080101
  13. YAZ [Suspect]
     Indication: PROPHYLAXIS
  14. TOPROL-XL [Concomitant]
     Indication: TACHYCARDIA
  15. AZITHROMYCIN [Concomitant]
     Dosage: 250 MG, UNK
  16. MACROBID [Concomitant]
  17. PROPOXYPHENE NAPSYLATE W/ ACETAMINOPHEN [Concomitant]
  18. YASMIN [Suspect]
     Indication: CONTRACEPTION
     Dosage: UNK
     Route: 048
     Dates: start: 20030101, end: 20060101
  19. ZOLOFT [Concomitant]
     Indication: TACHYCARDIA
  20. MICRONOR [Concomitant]
     Dosage: UNK
     Dates: start: 20060706, end: 20070427

REACTIONS (2)
  - NEPHROLITHIASIS [None]
  - CHOLELITHIASIS [None]
